FAERS Safety Report 4561642-6 (Version None)
Quarter: 2005Q1

REPORT INFORMATION
  Report Type: 
  Country: None (occurrence: None)
  Receive Date: 20050126
  Receipt Date: 20050119
  Transmission Date: 20050727
  Serious: Yes (Other)
  Sender: FDA-Public Use
  Company Number: JP-GLAXOSMITHKLINE-B0365406A

PATIENT
  Age: 15 Year
  Sex: Female
  Weight: 53 kg

DRUGS (4)
  1. PAXIL [Suspect]
     Dosage: 20MG PER DAY
     Route: 048
     Dates: start: 20041129, end: 20050113
  2. ALESION [Concomitant]
     Dosage: 10MG PER DAY
     Route: 048
     Dates: start: 20041111
  3. NAUZELIN [Concomitant]
     Indication: NAUSEA
     Dosage: 10MG PER DAY
     Route: 048
     Dates: start: 20050108
  4. DIPHENHYDRAMINE HCL [Concomitant]
     Route: 061
     Dates: start: 20041111

REACTIONS (2)
  - BASEDOW'S DISEASE [None]
  - LIVER FUNCTION TEST ABNORMAL [None]
